FAERS Safety Report 8157313-X (Version None)
Quarter: 2012Q1

REPORT INFORMATION
  Report Type: 
  Country: None (occurrence: None)
  Receive Date: 20120222
  Receipt Date: 20120215
  Transmission Date: 20120608
  Serious: Yes (Other)
  Sender: FDA-Public Use
  Company Number: JP-VERTEX PHARMACEUTICALS INC.-AE-2012-001321

PATIENT
  Age: 66 Year
  Sex: Male

DRUGS (10)
  1. POSTERISAN [Concomitant]
     Route: 061
     Dates: start: 20120120
  2. VOLTAREN [Concomitant]
     Route: 048
     Dates: start: 20120118, end: 20120119
  3. GASMOTIN [Concomitant]
     Route: 048
  4. TELAVIC (TELAPREVIR) [Suspect]
     Indication: HEPATITIS C
     Route: 048
     Dates: start: 20120118, end: 20120123
  5. FAMOTIDINE [Concomitant]
     Route: 048
     Dates: start: 20120118
  6. YODEL [Concomitant]
     Route: 048
     Dates: start: 20120118
  7. REBETOL [Concomitant]
     Indication: HEPATITIS C
     Route: 048
     Dates: start: 20120118
  8. CELECOXIB [Concomitant]
     Route: 048
     Dates: start: 20120120
  9. PEG-INTRON [Concomitant]
     Indication: HEPATITIS C
     Route: 051
     Dates: start: 20120118
  10. DEPAS [Concomitant]
     Route: 048
     Dates: start: 20120118

REACTIONS (7)
  - ERYTHEMA [None]
  - PURPURA [None]
  - MALAISE [None]
  - ABDOMINAL DISTENSION [None]
  - DECREASED APPETITE [None]
  - HAEMORRHAGE [None]
  - NAUSEA [None]
